FAERS Safety Report 5962986-3 (Version None)
Quarter: 2008Q4

REPORT INFORMATION
  Report Type: 
  Country: None (occurrence: None)
  Receive Date: 20081124
  Receipt Date: 20081113
  Transmission Date: 20090506
  Serious: Yes (Hospitalization)
  Sender: FDA-Public Use
  Company Number: JP-BRISTOL-MYERS SQUIBB COMPANY-14339220

PATIENT
  Age: 34 Year
  Sex: Male
  Weight: 67 kg

DRUGS (4)
  1. ABILIFY [Suspect]
     Indication: SCHIZOPHRENIA
     Dosage: IM DEPOT TAKEN 1 TAB ORALLY(6MG) ON 14MAY2008
     Route: 030
     Dates: start: 20080619, end: 20080619
  2. AKINETON [Concomitant]
     Dosage: TABLET FORM TAKEN ON 28MAY2005
     Dates: start: 20070217
  3. ROHIPNOL [Concomitant]
     Dosage: TABLET FORM  TAKEN ON 28APR2008
     Dates: start: 20040706
  4. LORAZEPAM [Concomitant]
     Dosage: TAKEN IN TABLET FORM
     Dates: start: 20050111

REACTIONS (1)
  - SCHIZOPHRENIA [None]
